FAERS Safety Report 15215201 (Version 1)
Quarter: 2018Q3

REPORT INFORMATION
  Report Type: Report from Study
  Country: None (occurrence: DE)
  Receive Date: 20180730
  Receipt Date: 20180730
  Transmission Date: 20181010
  Serious: Yes (Hospitalization)
  Sender: FDA-Public Use
  Company Number: DE-ABBVIE-18S-062-2435560-00

PATIENT
  Sex: Female

DRUGS (5)
  1. LEVODOPA RETARD [Concomitant]
     Indication: PARKINSONISM
     Route: 048
     Dates: start: 20180112
  2. ONGENTYS [Concomitant]
     Active Substance: OPICAPONE
     Indication: PARKINSONISM
     Route: 048
     Dates: start: 20180112
  3. DUODOPA [Suspect]
     Active Substance: CARBIDOPA\LEVODOPA
     Indication: PRODUCT USED FOR UNKNOWN INDICATION
     Route: 050
  4. LEVO C AL [Concomitant]
     Indication: PARKINSONISM
     Route: 048
     Dates: start: 20180124
  5. AMANTADIN [Concomitant]
     Active Substance: AMANTADINE
     Indication: PARKINSONISM
     Route: 048
     Dates: start: 20180208

REACTIONS (1)
  - Lumbar vertebral fracture [Recovered/Resolved]

NARRATIVE: CASE EVENT DATE: 2018
